FAERS Safety Report 23311240 (Version 1)
Quarter: 2023Q4

REPORT INFORMATION
  Report Type: Spontaneous
  Country: PL (occurrence: PL)
  Receive Date: 20231219
  Receipt Date: 20231219
  Transmission Date: 20240109
  Serious: Yes (Other)
  Sender: FDA-Public Use
  Company Number: None

PATIENT
  Age: 14 Year
  Sex: Female
  Weight: 50 kg

DRUGS (2)
  1. GAMMAGARD S/D [Suspect]
     Active Substance: HUMAN IMMUNOGLOBULIN G
     Indication: Meningitis bacterial
     Dosage: UNK
     Route: 042
     Dates: start: 20190520
  2. GAMMAGARD S/D [Suspect]
     Active Substance: HUMAN IMMUNOGLOBULIN G
     Indication: Meningitis bacterial
     Dosage: UNK
     Route: 042
     Dates: start: 20190520

REACTIONS (2)
  - Face oedema [Recovering/Resolving]
  - Erythema [Recovering/Resolving]
